FAERS Safety Report 24584205 (Version 1)
Quarter: 2024Q4

REPORT INFORMATION
  Report Type: Spontaneous
  Country: US (occurrence: None)
  Receive Date: 20241105
  Receipt Date: 20241105
  Transmission Date: 20250115
  Serious: No
  Sender: Public
  Company Number: None

PATIENT
  Age: 77 Year
  Sex: Female
  Weight: 71.21 kg

DRUGS (19)
  1. CALCITONIN SALMON [Suspect]
     Active Substance: CALCITONIN SALMON
     Indication: Spinal fracture
     Dosage: OTHER QUANTITY : 1 SPRAY IN 1 NOSTRIL EVERY DAY ALTERNATE EVERY DAY;?FREQUENCY : ONCE;?OTHER ROUTE :
     Route: 050
     Dates: start: 20240702, end: 20240815
  2. AZELASTINE [Suspect]
     Active Substance: AZELASTINE
  3. LEVOTHYROXINE [Concomitant]
  4. CARVEDILOL [Concomitant]
  5. LOSARTAN [Concomitant]
     Active Substance: LOSARTAN
  6. GUMEX [Concomitant]
  7. SPIRONOLACTONE [Concomitant]
  8. ROSUVASTATIN [Concomitant]
  9. SPIRIVA RESPIMAT [Concomitant]
     Active Substance: TIOTROPIUM BROMIDE
  10. LATANOPROST [Concomitant]
     Active Substance: LATANOPROST
  11. VT D3 [Concomitant]
  12. ASPIRIN [Concomitant]
  13. PRASTERONE [Concomitant]
     Active Substance: PRASTERONE
  14. VITAMIN C [Concomitant]
     Active Substance: ASCORBIC ACID
  15. GARLIC [Concomitant]
     Active Substance: GARLIC
  16. SELENIUM [Concomitant]
  17. GLUCOSAMINE WITH MSM [Concomitant]
  18. NM-6603 [Concomitant]
     Active Substance: NM-6603
  19. MULTI-VITAMIN [Concomitant]

REACTIONS (3)
  - Pruritus [None]
  - Nasal discomfort [None]
  - Sneezing [None]

NARRATIVE: CASE EVENT DATE: 20240702
